FAERS Safety Report 5244927-X (Version None)
Quarter: 2007Q1

REPORT INFORMATION
  Report Type: 
  Country: None (occurrence: None)
  Receive Date: 20070221
  Receipt Date: 20070221
  Transmission Date: 20070707
  Serious: No
  Sender: FDA-Public Use
  Company Number: None

PATIENT
  Sex: Female

DRUGS (2)
  1. ACTIQ [Suspect]
     Indication: HEADACHE
     Dosage: 800 MCGM 1 6 X D ORAL
     Route: 048
  2. ACTIQ [Suspect]
     Indication: NECK PAIN
     Dosage: 800 MCGM 1 6 X D ORAL
     Route: 048

REACTIONS (2)
  - DRUG EFFECT DECREASED [None]
  - THERAPEUTIC RESPONSE UNEXPECTED WITH DRUG SUBSTITUTION [None]
